FAERS Safety Report 20445427 (Version 1)
Quarter: 2022Q1

REPORT INFORMATION
  Report Type: Spontaneous
  Country: US (occurrence: None)
  Receive Date: 20220207
  Receipt Date: 20220207
  Transmission Date: 20220423
  Serious: Yes (unspecified)
  Sender: FDA-Public Use
  Company Number: None

PATIENT
  Age: 62 Year
  Sex: Female
  Weight: 64.86 kg

DRUGS (6)
  1. LEVAQUIN [Suspect]
     Active Substance: LEVOFLOXACIN
     Indication: Pneumonia
     Dosage: FREQUENCY : DAILY;?
     Route: 048
     Dates: start: 20211016, end: 20211022
  2. MELOXICAM [Concomitant]
     Active Substance: MELOXICAM
  3. HYDROCHLOROTHIAZIDE\LISINOPRIL [Concomitant]
     Active Substance: HYDROCHLOROTHIAZIDE\LISINOPRIL
  4. vitamin c [Concomitant]
  5. VITAMIN D [Concomitant]
     Active Substance: VITAMIN D NOS
  6. ZINC [Concomitant]
     Active Substance: ZINC

REACTIONS (1)
  - Tendon pain [None]

NARRATIVE: CASE EVENT DATE: 20211021
